FAERS Safety Report 10278173 (Version 4)
Quarter: 2015Q2

REPORT INFORMATION
  Report Type: Report from Study
  Country: JP (occurrence: JP)
  Receive Date: 20140704
  Receipt Date: 20150609
  Transmission Date: 20150821
  Serious: Yes (Hospitalization, Other)
  Sender: FDA-Public Use
  Company Number: JP-009507513-2011SP032350

PATIENT
  Age: 32 Year
  Sex: Female
  Weight: 52 kg

DRUGS (15)
  1. PROGE DEPOT [Concomitant]
     Indication: IN VITRO FERTILISATION
     Dosage: 125 MG, QD
     Route: 030
     Dates: start: 20100819, end: 20100930
  2. BRICANYL [Concomitant]
     Active Substance: TERBUTALINE SULFATE
     Indication: IN VITRO FERTILISATION
     Dosage: 4 MG, DIVIDED DOSE FREQUENCY UNKNOWN
     Route: 048
     Dates: start: 20100819, end: 20100831
  3. DACTIL [Concomitant]
     Indication: IN VITRO FERTILISATION
     Dosage: 150 MG, DIVIDED DOSE FREQUENCY UNKNOWN
     Route: 048
     Dates: start: 20100817, end: 20100817
  4. MENOTROPINS [Suspect]
     Active Substance: MENOTROPINS
     Dosage: 225 UNDER 1000UNIT, QD, TOTAL DAILY DOSE: 225 UNDER 1000 UNIT
     Route: 030
     Dates: start: 20100625, end: 20100625
  5. ESTRANA [Concomitant]
     Indication: IN VITRO FERTILISATION
     Dosage: FORMULATION: TAP, DAILY DOSAGE UNKNOWN
     Route: 062
     Dates: start: 20100817
  6. PROGESTERONE. [Concomitant]
     Active Substance: PROGESTERONE
     Indication: IN VITRO FERTILISATION
     Dosage: 400 MG, DIVIDED DOSE FREQUENCY UNKNOWN, FORMULATION: EXT
     Route: 067
     Dates: start: 20100827, end: 20100827
  7. LUTORAL (CHLORMADINONE ACETATE) [Concomitant]
     Active Substance: CHLORMADINONE ACETATE\MESTRANOL
     Indication: IN VITRO FERTILISATION
     Dosage: 6 MG, DIVIDED DOSE FREQUENCY UNKNOWN
     Route: 048
     Dates: start: 20100817, end: 20100817
  8. VITAMIN E [Concomitant]
     Active Substance: .ALPHA.-TOCOPHEROL
     Indication: IN VITRO FERTILISATION
     Dosage: 150 MG, DIVIDED DOSE FREQUENCY UNKNOWN
     Route: 048
     Dates: start: 20100817, end: 20100817
  9. GANIRELIX ACETATE. [Suspect]
     Active Substance: GANIRELIX ACETATE
     Indication: PREVENTION OF PREMATURE OVULATION
     Dosage: 0.25 MG, QD
     Route: 058
     Dates: start: 20100623, end: 20100625
  10. GONADOTROPIN, CHORIONIC [Concomitant]
     Active Substance: CHORIOGONADOTROPIN ALFA
     Indication: OVULATION INDUCTION
     Dosage: 5000 (UNDER 1000 UNIT) , QD, TOTAL DAILY DSE: 5000 UNDER 1000 UNIT
     Route: 065
     Dates: start: 20100626, end: 20100626
  11. MENOTROPINS [Suspect]
     Active Substance: MENOTROPINS
     Indication: IN VITRO FERTILISATION
     Dosage: 150 UNDER 1000 UNIT, QD, TOTAL DAILY DOSE: 150 UNDER 1000 UNIT
     Route: 030
     Dates: start: 20100623, end: 20100624
  12. BRICANYL [Concomitant]
     Active Substance: TERBUTALINE SULFATE
     Dosage: 6 MG, DIVIDED DOSE FREQUENCY UNKNOWN
     Route: 048
     Dates: start: 20100817, end: 20100819
  13. GONAL-F [Suspect]
     Active Substance: FOLLITROPIN
     Dosage: 150 (UNDER1000 UNIT), QD, TOTAL DAILY DOSE: 150 (UNDER1000 UNIT)
     Route: 058
     Dates: start: 20100619, end: 20100622
  14. GONAL-F [Suspect]
     Active Substance: FOLLITROPIN
     Indication: IN VITRO FERTILISATION
     Dosage: 300 (UNDER 1000 UNIT), QD, TOTAL DAILY DOSE: 300(UNDER 1000 UNIT)
     Route: 058
     Dates: start: 20100618, end: 20100618
  15. PROGESTON [Concomitant]
     Active Substance: MEDROXYPROGESTERONE ACETATE
     Indication: IN VITRO FERTILISATION
     Dosage: 50 MG, DIVIDED DOSE FREQUENCY UNKNOWN
     Route: 030
     Dates: start: 20100817, end: 20100817

REACTIONS (3)
  - Premature labour [Recovered/Resolved]
  - Abortion threatened [Unknown]
  - Ovarian hyperstimulation syndrome [Recovered/Resolved]

NARRATIVE: CASE EVENT DATE: 20100707
